FAERS Safety Report 7081864-2 (Version None)
Quarter: 2010Q4

REPORT INFORMATION
  Report Type: 
  Country: None (occurrence: None)
  Receive Date: 20101103
  Receipt Date: 20101026
  Transmission Date: 20110411
  Serious: Yes (Hospitalization)
  Sender: FDA-Public Use
  Company Number: US-AMGEN-KDC443295

PATIENT

DRUGS (13)
  1. DENOSUMAB [Suspect]
     Indication: OSTEOPOROSIS POSTMENOPAUSAL
     Dosage: 60 MG, Q6MO
     Route: 058
     Dates: start: 20101004
  2. ASCORBIC ACID [Concomitant]
  3. ERGOCALCIFEROL [Concomitant]
  4. CALCIUM [Concomitant]
  5. OMEPRAZOLE [Concomitant]
  6. GUAIFENESIN [Concomitant]
  7. AMLODIPINE [Concomitant]
     Dosage: 10 MG, QD
     Dates: start: 20100726
  8. LIDODERM [Concomitant]
  9. ALBUTEROL SULFATE [Concomitant]
  10. IPRATROPIUM BROMIDE [Concomitant]
  11. TRIMETHOPRIM + SULFAMETHOXAZOLE [Concomitant]
     Dosage: 500 MG, BID
     Dates: start: 20100726, end: 20100729
  12. OLMESARTAN MEDOXOMIL [Concomitant]
     Dosage: 20 MG, QD
     Dates: start: 20100726
  13. TOBRAMYCIN [Suspect]

REACTIONS (1)
  - PNEUMONIA STAPHYLOCOCCAL [None]
